FAERS Safety Report 24308440 (Version 1)
Quarter: 2024Q3

REPORT INFORMATION
  Report Type: Spontaneous
  Country: RO (occurrence: RO)
  Receive Date: 20240911
  Receipt Date: 20240911
  Transmission Date: 20241017
  Serious: Yes (Hospitalization, Other)
  Sender: PFIZER
  Company Number: RO-ROCHE-10000016679

PATIENT
  Age: 32 Year
  Sex: Male

DRUGS (13)
  1. RITUXIMAB [Suspect]
     Active Substance: RITUXIMAB
     Indication: Burkitt^s lymphoma
     Dosage: UNK
     Dates: start: 202301, end: 202306
  2. RITUXIMAB [Suspect]
     Active Substance: RITUXIMAB
     Dosage: UNK
     Route: 065
     Dates: start: 202405
  3. DOXORUBICIN [Concomitant]
     Active Substance: DOXORUBICIN
     Dosage: UNK
     Dates: start: 202301, end: 202306
  4. IFOSFAMIDE [Concomitant]
     Active Substance: IFOSFAMIDE
     Dosage: UNK
  5. CYTARABINE [Concomitant]
     Active Substance: CYTARABINE
     Dosage: UNK
     Dates: start: 202301, end: 202306
  6. GEMCITABINE [Concomitant]
     Active Substance: GEMCITABINE
     Dosage: UNK
     Dates: start: 20230930
  7. ETOPOSIDE [Concomitant]
     Active Substance: ETOPOSIDE
     Dosage: UNK
  8. CYTARABINE [Concomitant]
     Active Substance: CYTARABINE
     Dosage: UNK
     Route: 037
     Dates: start: 202301, end: 202306
  9. VINCRISTINE [Concomitant]
     Active Substance: VINCRISTINE
     Dosage: UNK
     Dates: start: 202301, end: 202306
  10. METHOTREXATE [Concomitant]
     Active Substance: METHOTREXATE
     Dosage: UNK
  11. DEXAMETHASONE [Concomitant]
     Active Substance: DEXAMETHASONE
     Dosage: UNK
     Dates: start: 20230930
  12. CISPLATIN [Concomitant]
     Active Substance: CISPLATIN
     Dosage: UNK
     Dates: start: 20230930
  13. CYCLOPHOSPHAMIDE [Concomitant]
     Active Substance: CYCLOPHOSPHAMIDE
     Dosage: UNK
     Dates: start: 202301, end: 202306

REACTIONS (8)
  - Peripheral swelling [Unknown]
  - Congenital aplasia [Unknown]
  - Neuropathy peripheral [Unknown]
  - Lymphoma [Unknown]
  - Burkitt^s lymphoma recurrent [Unknown]
  - Fibrosis [Unknown]
  - Nodule [Unknown]
  - Neoplasm [Unknown]

NARRATIVE: CASE EVENT DATE: 20230905
